FAERS Safety Report 9725975 (Version 1)
Quarter: 2013Q4

REPORT INFORMATION
  Report Type: Spontaneous
  Country: CZ (occurrence: CZ)
  Receive Date: 20131203
  Receipt Date: 20131203
  Transmission Date: 20140711
  Serious: Yes (Other)
  Sender: FDA-Public Use
  Company Number: CZ-JNJFOC-20131115809

PATIENT
  Sex: Male

DRUGS (3)
  1. DUROGESIC [Suspect]
     Indication: PAIN
     Route: 062
     Dates: start: 20131120
  2. DUROGESIC [Suspect]
     Indication: PAIN
     Dosage: 1ST APLICATION 140 MCQ/HR (2 PATCHES)  ON 19-NOV-2013, THEN ONE PATCH WAS REMOVED ON 20-NOV-2013
     Route: 062
     Dates: start: 20131119, end: 20131120
  3. AULIN [Concomitant]
     Route: 065

REACTIONS (2)
  - Loss of consciousness [Recovered/Resolved]
  - Pain [Unknown]
